FAERS Safety Report 5485722-6 (Version None)
Quarter: 2007Q4

REPORT INFORMATION
  Report Type: 
  Country: None (occurrence: None)
  Receive Date: 20071015
  Receipt Date: 20071004
  Transmission Date: 20080405
  Serious: Yes (Other)
  Sender: FDA-Public Use
  Company Number: FR-ROCHE-523430

PATIENT
  Age: 63 Year
  Sex: Male

DRUGS (4)
  1. ROCEPHIN [Suspect]
     Route: 042
     Dates: start: 20070721, end: 20070726
  2. OFLOCET [Suspect]
     Route: 048
     Dates: start: 20070721, end: 20070727
  3. PERFALGAN [Concomitant]
     Route: 042
     Dates: start: 20070721, end: 20070723
  4. LOVENOX [Concomitant]
     Route: 058
     Dates: start: 20070721, end: 20070723

REACTIONS (2)
  - SCOTOMA [None]
  - VISUAL DISTURBANCE [None]
